FAERS Safety Report 8956330 (Version 1)
Quarter: 2012Q4

REPORT INFORMATION
  Report Type: 
  Country: US (occurrence: US)
  Receive Date: 20121210
  Receipt Date: 20121210
  Transmission Date: 20130627
  Serious: No
  Sender: FDA-Public Use
  Company Number: US-ASTRAZENECA-2006UW03852

PATIENT
  Age: 765 Month
  Sex: Male
  Weight: 72.6 kg

DRUGS (2)
  1. NEXIUM [Suspect]
     Indication: GASTROOESOPHAGEAL REFLUX DISEASE
     Route: 048
     Dates: start: 200403
  2. NAPROSYN [Concomitant]

REACTIONS (3)
  - Gastrooesophageal reflux disease [Unknown]
  - Nervous system disorder [Unknown]
  - Frequent bowel movements [Unknown]
